FAERS Safety Report 7961246-9 (Version None)
Quarter: 2011Q4

REPORT INFORMATION
  Report Type: 
  Country: None (occurrence: None)
  Receive Date: 20111207
  Receipt Date: 20101027
  Transmission Date: 20120403
  Serious: No
  Sender: FDA-Public Use
  Company Number: US-GLAXOSMITHKLINE-A0889129A

PATIENT
  Sex: Female

DRUGS (1)
  1. EVOCLIN [Suspect]
     Indication: ACNE
     Dosage: 1APP UNKNOWN
     Route: 061

REACTIONS (1)
  - HYPERSENSITIVITY [None]
